FAERS Safety Report 5521614-1 (Version None)
Quarter: 2007Q4

REPORT INFORMATION
  Report Type: 
  Country: None (occurrence: None)
  Receive Date: 20071119
  Receipt Date: 20071119
  Transmission Date: 20080405
  Serious: No
  Sender: FDA-Public Use
  Company Number: None

PATIENT
  Age: 54 Year
  Sex: Male
  Weight: 103.4201 kg

DRUGS (16)
  1. FOSINOPRIL SODIUM [Suspect]
     Indication: DIABETES MELLITUS
     Dosage: 40MG  EVERY DAY  PO
     Route: 048
     Dates: start: 20070123, end: 20071015
  2. FOSINOPRIL SODIUM [Suspect]
     Indication: HYPERTENSION
     Dosage: 40MG  EVERY DAY  PO
     Route: 048
     Dates: start: 20070123, end: 20071015
  3. NAPROXEN [Suspect]
     Dates: start: 20071001, end: 20071015
  4. BUPROPION HCL [Concomitant]
  5. MORPHINE [Concomitant]
  6. PERCOCET [Concomitant]
  7. CITALOPRAM [Concomitant]
  8. THEOPHYLLINE [Concomitant]
  9. TERAZOSIN HCL [Concomitant]
  10. MONTEKULAST [Concomitant]
  11. FORMETEROL [Concomitant]
  12. ALBUTEROL [Concomitant]
  13. MIRTAZAPINE [Concomitant]
  14. OXYBUTYNIN CHLORIDE [Concomitant]
  15. SIMVASTATIN [Concomitant]
  16. MOMETASONE FUROATE [Concomitant]

REACTIONS (1)
  - ANGIOEDEMA [None]
